FAERS Safety Report 15742758 (Version 3)
Quarter: 2019Q1

REPORT INFORMATION
  Report Type: Spontaneous
  Country: US (occurrence: US)
  Receive Date: 20181219
  Receipt Date: 20190128
  Transmission Date: 20190417
  Serious: Yes (Other)
  Sender: FDA-Public Use
  Company Number: US-MALLINCKRODT-T201805478

PATIENT
  Age: 58 Year
  Sex: Male

DRUGS (2)
  1. H.P. ACTHAR [Suspect]
     Active Substance: CORTICOTROPIN
     Indication: RHEUMATOID ARTHRITIS
     Dosage: 80 UNITS, EVERY 72 HOURS
     Route: 058
     Dates: start: 20181031, end: 2018
  2. H.P. ACTHAR [Suspect]
     Active Substance: CORTICOTROPIN
     Dosage: 80 UNITS, EVERY 72 HOURS
     Route: 058
     Dates: start: 2018

REACTIONS (5)
  - Arthralgia [Recovered/Resolved]
  - Fall [Recovered/Resolved]
  - Joint stiffness [Recovered/Resolved]
  - Injection site bruising [Unknown]
  - Upper limb fracture [Recovered/Resolved]

NARRATIVE: CASE EVENT DATE: 20181117
